FAERS Safety Report 17828566 (Version 1)
Quarter: 2020Q2

REPORT INFORMATION
  Report Type: Report from Study
  Country: US (occurrence: US)
  Receive Date: 20200527
  Receipt Date: 20200527
  Transmission Date: 20200714
  Serious: Yes (Other)
  Sender: FDA-Public Use
  Company Number: US-TAKEDA-2020TUS023776

PATIENT
  Sex: Female
  Weight: 72.5 kg

DRUGS (1)
  1. BRIGATINIB [Suspect]
     Active Substance: BRIGATINIB
     Indication: NON-SMALL CELL LUNG CANCER
     Dosage: UNK
     Route: 065

REACTIONS (12)
  - Fatigue [Unknown]
  - Metastases to adrenals [Unknown]
  - Dry mouth [Unknown]
  - Dyspnoea [Unknown]
  - Pain [Unknown]
  - Gastrointestinal disorder [Unknown]
  - Sleep disorder [Unknown]
  - Blood cholesterol increased [Unknown]
  - Memory impairment [Unknown]
  - Emotional distress [Unknown]
  - Metastases to central nervous system [Unknown]
  - Somnolence [Unknown]
